FAERS Safety Report 9336582 (Version 1)
Quarter: 2013Q2

REPORT INFORMATION
  Report Type: Spontaneous
  Country: US (occurrence: US)
  Receive Date: 20130607
  Receipt Date: 20130607
  Transmission Date: 20140414
  Serious: No
  Sender: FDA-Public Use
  Company Number: US-PFIZER INC-2013171890

PATIENT
  Age: 59 Year
  Sex: Female
  Weight: 88.44 kg

DRUGS (5)
  1. PRISTIQ [Suspect]
     Indication: ANXIETY
     Dosage: 50 MG DAILY
     Route: 048
     Dates: end: 2013
  2. PRISTIQ [Suspect]
     Indication: DEPRESSION
     Dosage: 50 MG, ALTERNATE DAY
     Route: 048
     Dates: start: 2013, end: 2013
  3. PRISTIQ [Suspect]
     Dosage: 50 MG DAILY
     Route: 048
     Dates: start: 2013
  4. SYNTHROID [Concomitant]
     Indication: HYPOTHYROIDISM
     Dosage: 88 MCG DAILY
  5. DIOVAN (VALSARTAN) [Concomitant]
     Indication: HYPERTENSION
     Dosage: 40 MG DAILY

REACTIONS (6)
  - Withdrawal syndrome [Recovering/Resolving]
  - Influenza like illness [Recovering/Resolving]
  - Feeling abnormal [Recovering/Resolving]
  - Dizziness [Recovering/Resolving]
  - Insomnia [Recovering/Resolving]
  - Nausea [Recovering/Resolving]
